FAERS Safety Report 4746765-0 (Version None)
Quarter: 2005Q3

REPORT INFORMATION
  Report Type: 
  Country: None (occurrence: None)
  Receive Date: 20050815
  Receipt Date: 20050802
  Transmission Date: 20060218
  Serious: Yes (Other)
  Sender: FDA-Public Use
  Company Number: 2002099362JP

PATIENT
  Age: 6 Year
  Sex: Female

DRUGS (5)
  1. GENOTROPIN [Suspect]
     Indication: RENAL FAILURE CHRONIC
     Dosage: 0.4 MG (0.4 MG, 1 IN 1 D), SUBCUTANEOUS
     Route: 058
     Dates: start: 20010321, end: 20010829
  2. DILAZEP (DILAZEP) [Concomitant]
  3. MIZORIBINE (MIZORIBINE) [Concomitant]
  4. SAIREI-TO (HERBAL EXTRACTS NOS) [Concomitant]
  5. ALLOPURINOL [Concomitant]

REACTIONS (4)
  - COMPLICATIONS OF TRANSPLANTED KIDNEY [None]
  - PERITONEAL DIALYSIS [None]
  - RENAL IMPAIRMENT [None]
  - RENAL TRANSPLANT [None]
